FAERS Safety Report 7315279-6 (Version None)
Quarter: 2011Q1

REPORT INFORMATION
  Report Type: 
  Country: None (occurrence: None)
  Receive Date: 20110225
  Receipt Date: 20110216
  Transmission Date: 20110831
  Serious: Yes (Death, Life-Threatening, Other)
  Sender: FDA-Public Use
  Company Number: JP-ROCHE-761273

PATIENT
  Sex: Male
  Weight: 44 kg

DRUGS (22)
  1. ISOVORIN [Concomitant]
     Dosage: NOTE: DOSAGE IS UNCERTAIN.
     Route: 041
     Dates: start: 20090321, end: 20090401
  2. ISOVORIN [Concomitant]
     Dosage: NOTE: DOSAGE IS UNCERTAIN.
     Route: 041
     Dates: start: 20090514, end: 20090806
  3. 5-FU [Concomitant]
     Dosage: ROUTE: INTRAVENOUS BOLUS, NOTE: DOSAGE IS UNCERTAIN.
     Route: 040
     Dates: start: 20090321, end: 20090401
  4. KYTRIL [Concomitant]
     Route: 041
     Dates: start: 20100114, end: 20100114
  5. DECADRON [Concomitant]
     Route: 041
     Dates: start: 20100114, end: 20100114
  6. CALCICOL [Concomitant]
     Route: 041
     Dates: start: 20100114, end: 20100114
  7. VOLTAREN [Concomitant]
     Route: 048
     Dates: start: 20091224, end: 20100210
  8. 5-FU [Concomitant]
     Dosage: ROUTE: INTRAVENOUS DRIP, NOTE: DOSAGE IS UNCERTAIN.
     Route: 040
     Dates: start: 20090321, end: 20090401
  9. 5-FU [Concomitant]
     Dosage: ROUTE: INTRAVENOUS BOLUS, NOTE: DOSAGE IS UNCERTAIN.
     Route: 040
     Dates: start: 20090514, end: 20090806
  10. 5-FU [Concomitant]
     Dosage: ROUTE: INTRAVENOUS DRIP, NOTE: DOSAGE IS UNCERTAIN.
     Route: 040
     Dates: start: 20090514, end: 20090801
  11. AVASTIN [Suspect]
     Route: 041
     Dates: start: 20090514, end: 20090806
  12. AVASTIN [Suspect]
     Route: 041
     Dates: start: 20100114, end: 20100114
  13. 5-FU [Concomitant]
     Dosage: ROUTE: INTRAVENOUS DRIP
     Route: 040
     Dates: start: 20100114, end: 20100101
  14. RESTAMIN [Concomitant]
     Dosage: NOTE: DOSAGE IS UNCERTAIN.
     Route: 048
     Dates: start: 20100114, end: 20100114
  15. AVASTIN [Suspect]
     Indication: RECTAL CANCER RECURRENT
     Route: 041
     Dates: start: 20090321, end: 20090401
  16. 5-FU [Concomitant]
     Dosage: ROUTE: INTRAVENOUS BOLUS
     Route: 040
     Dates: start: 20100114, end: 20100114
  17. IRINOTECAN HCL [Concomitant]
     Dosage: NOTE: DOSAGE IS UNCERTAIN.
     Route: 041
     Dates: start: 20090514, end: 20090806
  18. ELPLAT [Suspect]
     Indication: RECTAL CANCER RECURRENT
     Dosage: NOTE: DOSAGE IS UNCERTAIN.
     Route: 041
     Dates: start: 20090321, end: 20090401
  19. PROTECADIN [Concomitant]
     Route: 048
     Dates: start: 20080422, end: 20100210
  20. ELPLAT [Suspect]
     Route: 041
     Dates: start: 20100114, end: 20100114
  21. ISOVORIN [Concomitant]
     Route: 041
     Dates: start: 20100114, end: 20100114
  22. TS-1 [Concomitant]
     Dosage: DOSE FORM: PERORAL AGENT
     Route: 048
     Dates: start: 20090820, end: 20091210

REACTIONS (5)
  - DISEASE PROGRESSION [None]
  - PELVIC ABSCESS [None]
  - NEUROPATHY PERIPHERAL [None]
  - ILEAL FISTULA [None]
  - ILEAL PERFORATION [None]
